FAERS Safety Report 12555394 (Version 1)
Quarter: 2016Q3

REPORT INFORMATION
  Report Type: Spontaneous
  Country: GB (occurrence: GB)
  Receive Date: 20160714
  Receipt Date: 20160714
  Transmission Date: 20161109
  Serious: Yes (Death, Other)
  Sender: FDA-Public Use
  Company Number: GB-ACCORD-042248

PATIENT
  Sex: Female

DRUGS (11)
  1. CARBOPLATIN. [Concomitant]
     Active Substance: CARBOPLATIN
     Indication: CHEMOTHERAPY
     Dates: start: 201404, end: 201504
  2. EPIRUBICIN [Concomitant]
     Active Substance: EPIRUBICIN
     Indication: CHEMOTHERAPY
     Dates: start: 201404, end: 201504
  3. ZOMETA [Concomitant]
     Active Substance: ZOLEDRONIC ACID
  4. FLUOROURACIL. [Concomitant]
     Active Substance: FLUOROURACIL
     Indication: CHEMOTHERAPY
     Dates: start: 201404, end: 201504
  5. CYCLOPHOSPHAMIDE/CYCLOPHOSPHAMIDE MONOHYDRATE [Concomitant]
     Indication: CHEMOTHERAPY
     Dates: start: 201404, end: 201504
  6. CAPECITABINE. [Suspect]
     Active Substance: CAPECITABINE
     Indication: BREAST CANCER METASTATIC
     Route: 048
     Dates: start: 201205, end: 201306
  7. PACLITAXEL/PACLITAXEL LIPOSOME [Concomitant]
     Indication: CHEMOTHERAPY
     Dates: start: 201404, end: 201504
  8. ERIBULIN [Concomitant]
     Active Substance: ERIBULIN
     Dates: start: 201307, end: 201404
  9. GEMCITABINE [Concomitant]
     Active Substance: GEMCITABINE\GEMCITABINE HYDROCHLORIDE
     Indication: CHEMOTHERAPY
     Dates: start: 201404, end: 201504
  10. VINORELBINE [Concomitant]
     Active Substance: VINORELBINE\VINORELBINE TARTRATE
     Indication: CHEMOTHERAPY
     Dates: start: 201404, end: 201504
  11. METHOTREXATE. [Concomitant]
     Active Substance: METHOTREXATE
     Indication: CHEMOTHERAPY
     Dates: start: 201404, end: 201504

REACTIONS (3)
  - Ascites [Recovering/Resolving]
  - Death [Fatal]
  - Quality of life decreased [Unknown]

NARRATIVE: CASE EVENT DATE: 201601
